FAERS Safety Report 5627386-4 (Version None)
Quarter: 2008Q1

REPORT INFORMATION
  Report Type: 
  Country: None (occurrence: None)
  Receive Date: 20080215
  Receipt Date: 20071116
  Transmission Date: 20080703
  Serious: Yes (Other)
  Sender: FDA-Public Use
  Company Number: US-JNJFOC-20071107300

PATIENT
  Sex: Female
  Weight: 84.82 kg

DRUGS (2)
  1. REMICADE [Suspect]
     Route: 042
  2. REMICADE [Suspect]
     Indication: RHEUMATOID ARTHRITIS
     Route: 042

REACTIONS (6)
  - ABDOMINAL DISTENSION [None]
  - ALOPECIA [None]
  - FATIGUE [None]
  - FLANK PAIN [None]
  - HEADACHE [None]
  - SYSTEMIC LUPUS ERYTHEMATOSUS [None]
